FAERS Safety Report 12483787 (Version 1)
Quarter: 2016Q2

REPORT INFORMATION
  Report Type: Spontaneous
  Country: US (occurrence: None)
  Receive Date: 20160620
  Receipt Date: 20160620
  Transmission Date: 20160815
  Serious: No
  Sender: FDA-Public Use
  Company Number: None

PATIENT
  Age: 20 Year
  Sex: Female

DRUGS (3)
  1. AQUADEKS [Concomitant]
     Active Substance: MINERALS\VITAMINS
  2. LEVALBUTEROL. [Concomitant]
     Active Substance: LEVALBUTEROL
  3. KALYDECO [Suspect]
     Active Substance: IVACAFTOR
     Indication: CYSTIC FIBROSIS
     Route: 048
     Dates: start: 20130214

REACTIONS (2)
  - Drug dose omission [None]
  - Memory impairment [None]
